FAERS Safety Report 25319390 (Version 5)
Quarter: 2025Q3

REPORT INFORMATION
  Report Type: Spontaneous
  Country: JP (occurrence: JP)
  Receive Date: 20250515
  Receipt Date: 20250820
  Transmission Date: 20251020
  Serious: Yes (Death, Hospitalization, Other)
  Sender: ABBVIE
  Company Number: JP-ABBVIE-6282456

PATIENT
  Age: 76 Year
  Sex: Female
  Weight: 50 kg

DRUGS (10)
  1. HUMIRA [Suspect]
     Active Substance: ADALIMUMAB
     Indication: Pyoderma gangrenosum
     Dosage: FORM STRENGTH: 40 MILLIGRAM??SOLUTION FOR INJECTION IN PRE-FILLED PEN
     Route: 058
     Dates: start: 20250203, end: 20250401
  2. HUMIRA [Suspect]
     Active Substance: ADALIMUMAB
     Route: 058
     Dates: start: 20241126, end: 20241205
  3. HUMIRA [Suspect]
     Active Substance: ADALIMUMAB
     Route: 058
     Dates: start: 20241029
  4. HUMIRA [Suspect]
     Active Substance: ADALIMUMAB
     Route: 058
     Dates: start: 20241112
  5. SULFASALAZINE [Concomitant]
     Active Substance: SULFASALAZINE
     Indication: Rheumatoid arthritis
     Dosage: 1000 MILLIGRAM
     Route: 048
     Dates: end: 20250416
  6. HERBALS [Concomitant]
     Active Substance: HERBALS
     Indication: Pyoderma gangrenosum
     Route: 048
     Dates: start: 20240903, end: 20241224
  7. DAPSONE [Concomitant]
     Active Substance: DAPSONE
     Indication: Pyoderma gangrenosum
     Route: 048
     Dates: start: 20240917, end: 20241224
  8. IGURATIMOD [Concomitant]
     Active Substance: IGURATIMOD
     Indication: Rheumatoid arthritis
     Dosage: 50 MILLIGRAM
     Route: 048
     Dates: end: 20250416
  9. PREDNISOLONE [Suspect]
     Active Substance: PREDNISOLONE
     Indication: Rheumatoid arthritis
     Dosage: 6 MILLIGRAM
     Route: 048
     Dates: end: 20250416
  10. PROGRAF [Suspect]
     Active Substance: TACROLIMUS
     Indication: Pyoderma gangrenosum
     Dosage: 3 MILLIGRAM
     Route: 048
     Dates: end: 20250416

REACTIONS (5)
  - Sepsis [Fatal]
  - Retroperitoneal abscess [Unknown]
  - Pleural effusion [Not Recovered/Not Resolved]
  - Staphylococcal infection [Unknown]
  - Pyoderma gangrenosum [Unknown]

NARRATIVE: CASE EVENT DATE: 20241203
